FAERS Safety Report 8384493-3 (Version None)
Quarter: 2012Q2

REPORT INFORMATION
  Report Type: 
  Country: None (occurrence: None)
  Receive Date: 20120524
  Receipt Date: 20120516
  Transmission Date: 20120825
  Serious: Yes (Hospitalization)
  Sender: FDA-Public Use
  Company Number: JP-JNJFOC-20120515848

PATIENT
  Sex: Female

DRUGS (12)
  1. ASPIRIN [Concomitant]
     Route: 048
  2. SIMPONI [Suspect]
     Indication: RHEUMATOID ARTHRITIS
     Route: 058
     Dates: start: 20120301, end: 20120301
  3. METHOTREXATE [Concomitant]
     Indication: RHEUMATOID ARTHRITIS
     Dates: start: 20111124
  4. PREDNISOLONE [Concomitant]
     Route: 048
     Dates: start: 20110331, end: 20111027
  5. PREDNISOLONE [Concomitant]
     Indication: RHEUMATOID ARTHRITIS
     Route: 048
     Dates: start: 20120119
  6. VIVIANT [Concomitant]
     Route: 048
  7. CHOLEBRINE [Concomitant]
     Route: 048
  8. SULFASALAZINE [Concomitant]
     Indication: RHEUMATOID ARTHRITIS
     Route: 048
     Dates: start: 20110331
  9. RABEPRAZOLE SODIUM [Concomitant]
     Route: 048
  10. LOSARTAN POTASSIUM AND HYDROCHLOROTHIAZIDE [Concomitant]
     Route: 048
  11. ATELEC [Concomitant]
     Route: 048
  12. LIPITOR [Concomitant]
     Route: 048

REACTIONS (2)
  - BILE DUCT STONE [None]
  - PANCREATITIS ACUTE [None]
